FAERS Safety Report 19865293 (Version 1)
Quarter: 2021Q3

REPORT INFORMATION
  Report Type: Spontaneous
  Country: US (occurrence: US)
  Receive Date: 20210921
  Receipt Date: 20210921
  Transmission Date: 20211014
  Serious: Yes (Death)
  Sender: FDA-Public Use
  Company Number: None

PATIENT
  Sex: Female

DRUGS (14)
  1. TYLENOL [Concomitant]
     Active Substance: ACETAMINOPHEN
  2. LIPITOR [Concomitant]
     Active Substance: ATORVASTATIN CALCIUM
  3. LOPERAMIDE [Concomitant]
     Active Substance: LOPERAMIDE
  4. SYNTHROID [Concomitant]
     Active Substance: LEVOTHYROXINE SODIUM
  5. LOTREL [Concomitant]
     Active Substance: AMLODIPINE BESYLATE\BENAZEPRIL HYDROCHLORIDE
  6. LUMIGAN, [Concomitant]
  7. TIMOLOL. [Concomitant]
     Active Substance: TIMOLOL
  8. XANAX [Concomitant]
     Active Substance: ALPRAZOLAM
  9. ASPIRIN. [Concomitant]
     Active Substance: ASPIRIN
  10. CELEXA [Concomitant]
     Active Substance: CITALOPRAM HYDROBROMIDE
  11. COREG [Concomitant]
     Active Substance: CARVEDILOL
  12. INLYTA [Suspect]
     Active Substance: AXITINIB
     Indication: RENAL CANCER
     Route: 048
  13. OMEPRAZOLE. [Concomitant]
     Active Substance: OMEPRAZOLE
  14. DOCUSATE [Concomitant]
     Active Substance: DOCUSATE

REACTIONS (1)
  - Death [None]
